FAERS Safety Report 19999866 (Version 1)
Quarter: 2021Q4

REPORT INFORMATION
  Report Type: Spontaneous
  Country: US (occurrence: US)
  Receive Date: 20211027
  Receipt Date: 20211027
  Transmission Date: 20220303
  Serious: Yes (Other)
  Sender: FDA-Public Use
  Company Number: US-SUN PHARMACEUTICAL INDUSTRIES LTD-2021R1-315402

PATIENT
  Age: 64 Year
  Sex: Male

DRUGS (4)
  1. IPRATROPIUM [Suspect]
     Active Substance: IPRATROPIUM
     Indication: COVID-19
     Dosage: UNK
     Route: 065
  2. DEXAMETHASONE [Suspect]
     Active Substance: DEXAMETHASONE
     Indication: COVID-19
     Route: 042
  3. BUMETANIDE [Suspect]
     Active Substance: BUMETANIDE
     Indication: COVID-19
     Route: 042
  4. ALBUTEROL [Suspect]
     Active Substance: ALBUTEROL
     Indication: COVID-19
     Route: 042

REACTIONS (5)
  - Disease progression [Unknown]
  - Dyspnoea [Recovering/Resolving]
  - Fatigue [Unknown]
  - Pain [Recovering/Resolving]
  - Feeling of despair [Unknown]
